FAERS Safety Report 5427878-7 (Version None)
Quarter: 2007Q3

REPORT INFORMATION
  Report Type: 
  Country: None (occurrence: None)
  Receive Date: 20070828
  Receipt Date: 20070818
  Transmission Date: 20080115
  Serious: Yes (Death, Other)
  Sender: FDA-Public Use
  Company Number: US-PFIZER INC-2007008639

PATIENT
  Sex: Male
  Weight: 81.2 kg

DRUGS (1)
  1. SUTENT [Suspect]
     Route: 048

REACTIONS (2)
  - DEATH [None]
  - FALL [None]
